FAERS Safety Report 17698921 (Version 1)
Quarter: 2020Q2

REPORT INFORMATION
  Report Type: Spontaneous
  Country: US (occurrence: US)
  Receive Date: 20200423
  Receipt Date: 20200423
  Transmission Date: 20200714
  Serious: Yes (Other)
  Sender: FDA-Public Use
  Company Number: None

PATIENT
  Age: 29 Year
  Sex: Female
  Weight: 47.25 kg

DRUGS (3)
  1. MONTELUKAST [Suspect]
     Active Substance: MONTELUKAST SODIUM
     Indication: ASTHMA
     Dosage: ?          QUANTITY:30 TABLET(S);?
     Route: 048
     Dates: start: 20200303, end: 20200306
  2. MONTELUKAST [Suspect]
     Active Substance: MONTELUKAST SODIUM
     Indication: HYPERSENSITIVITY
     Dosage: ?          QUANTITY:30 TABLET(S);?
     Route: 048
     Dates: start: 20200303, end: 20200306
  3. LORATADINE. [Concomitant]
     Active Substance: LORATADINE

REACTIONS (8)
  - Poor quality sleep [None]
  - Abnormal dreams [None]
  - Crying [None]
  - Feeling abnormal [None]
  - Suicidal ideation [None]
  - Depression [None]
  - Memory impairment [None]
  - Suicide attempt [None]

NARRATIVE: CASE EVENT DATE: 20200306
